FAERS Safety Report 6015735-7 (Version None)
Quarter: 2008Q4

REPORT INFORMATION
  Report Type: 
  Country: None (occurrence: None)
  Receive Date: 20081222
  Receipt Date: 20080424
  Transmission Date: 20090506
  Serious: No
  Sender: FDA-Public Use
  Company Number: US-BAYER-200812025BCC

PATIENT
  Age: 69 Year
  Sex: Female
  Weight: 77 kg

DRUGS (11)
  1. ALEVE (CAPLET) [Suspect]
     Indication: TOOTHACHE
     Dosage: TOTAL DAILY DOSE: 660 MG  UNIT DOSE: 220 MG
     Route: 048
  2. PREMPRO [Concomitant]
  3. VITAMIN B-12 [Concomitant]
  4. CALCIUM [Concomitant]
  5. STOOL SOFTENER [Concomitant]
  6. ASCORBIC ACID [Concomitant]
  7. FISH OIL [Concomitant]
  8. ASPIRIN [Concomitant]
     Route: 048
  9. SEROQUEL [Concomitant]
  10. KLONOPIN [Concomitant]
  11. TEGRETOL [Concomitant]

REACTIONS (1)
  - CONSTIPATION [None]
